FAERS Safety Report 25322854 (Version 1)
Quarter: 2025Q2

REPORT INFORMATION
  Report Type: Spontaneous
  Country: US (occurrence: US)
  Receive Date: 20250516
  Receipt Date: 20250516
  Transmission Date: 20250717
  Serious: Yes (Other)
  Sender: CATALYST PHARMA
  Company Number: US-CATALYST PHARMACEUTICALS, INC-US-CATA-25-00685

PATIENT
  Sex: Female
  Weight: 99.773 kg

DRUGS (4)
  1. FIRDAPSE [Suspect]
     Active Substance: AMIFAMPRIDINE PHOSPHATE
     Indication: Myasthenic syndrome
     Dosage: TITRATION; 5 MG BY MOUTH 3 TIMES A DAY FOR 3 DAYS, THEN INCREASE BY 5 MG EVERY 3 DAYS TO A MAX DOSE
     Route: 048
     Dates: start: 20231005, end: 2023
  2. FIRDAPSE [Suspect]
     Active Substance: AMIFAMPRIDINE PHOSPHATE
     Dosage: 8 TABLETS DAILY IN DIVIDED DOSES
     Route: 048
     Dates: start: 20231204
  3. NURTEC ODT [Concomitant]
     Active Substance: RIMEGEPANT SULFATE
     Indication: Ophthalmic migraine
     Route: 065
  4. BARIATRIC MULTIVITAMIN [Concomitant]
     Indication: Malnutrition
     Route: 065

REACTIONS (2)
  - Immunodeficiency [Not Recovered/Not Resolved]
  - Exposure to fungus [Not Recovered/Not Resolved]
